FAERS Safety Report 16334924 (Version 1)
Quarter: 2019Q2

REPORT INFORMATION
  Report Type: Spontaneous
  Country: VE (occurrence: VE)
  Receive Date: 20190520
  Receipt Date: 20190520
  Transmission Date: 20190711
  Serious: Yes (Other)
  Sender: FDA-Public Use
  Company Number: PHHY2019VE113676

PATIENT
  Sex: Male

DRUGS (1)
  1. GLIVEC [Suspect]
     Active Substance: IMATINIB MESYLATE
     Indication: CHRONIC MYELOID LEUKAEMIA
     Dosage: 400 MG, UNK (4X 100 MG TABLETS)
     Route: 065

REACTIONS (4)
  - Rash erythematous [Unknown]
  - Inflammation [Unknown]
  - Spinal pain [Unknown]
  - Intervertebral disc protrusion [Unknown]
